FAERS Safety Report 22022498 (Version 1)
Quarter: 2023Q1

REPORT INFORMATION
  Report Type: Spontaneous
  Country: CH (occurrence: CH)
  Receive Date: 20230222
  Receipt Date: 20230222
  Transmission Date: 20230418
  Serious: Yes (Other)
  Sender: FDA-Public Use
  Company Number: CH-BAYER-2023A017025

PATIENT
  Age: 33 Year
  Sex: Female

DRUGS (5)
  1. CIPROFLOXACIN [Suspect]
     Active Substance: CIPROFLOXACIN
     Indication: Tularaemia
  2. CEFTRIAXONE [Concomitant]
     Active Substance: CEFTRIAXONE
     Indication: Pyelonephritis
  3. MEROPENEM [Concomitant]
     Active Substance: MEROPENEM
     Indication: Listeriosis
  4. MEROPENEM [Concomitant]
     Active Substance: MEROPENEM
     Indication: Bacterial infection
  5. SULFAMETHOXAZOLE\TRIMETHOPRIM [Concomitant]
     Active Substance: SULFAMETHOXAZOLE\TRIMETHOPRIM

REACTIONS (2)
  - Foetal death [None]
  - Maternal exposure during pregnancy [None]
